FAERS Safety Report 10682477 (Version 1)
Quarter: 2014Q4

REPORT INFORMATION
  Report Type: Other
  Country: FR (occurrence: FR)
  Receive Date: 20141230
  Receipt Date: 20141230
  Transmission Date: 20150529
  Serious: Yes (Hospitalization, Other)
  Sender: FDA-Public Use
  Company Number: FR-MYLANLABS-2014M1015889

PATIENT

DRUGS (6)
  1. OXALIPLATIN. [Suspect]
     Active Substance: OXALIPLATIN
     Indication: PRODUCT USED FOR UNKNOWN INDICATION
     Dosage: UNK
  2. VECTIBIX [Suspect]
     Active Substance: PANITUMUMAB
     Dosage: UNK
     Route: 042
     Dates: start: 20141016, end: 20141016
  3. 5 FU [Suspect]
     Active Substance: FLUOROURACIL
     Indication: PRODUCT USED FOR UNKNOWN INDICATION
     Dosage: UNK
  4. 5 FU [Suspect]
     Active Substance: FLUOROURACIL
     Dosage: UNK
     Route: 042
     Dates: start: 20141016, end: 20141016
  5. OXALIPLATIN. [Suspect]
     Active Substance: OXALIPLATIN
     Dosage: UNK
     Route: 042
     Dates: start: 20141016, end: 20141016
  6. VECTIBIX [Suspect]
     Active Substance: PANITUMUMAB
     Indication: PRODUCT USED FOR UNKNOWN INDICATION
     Dosage: UNK

REACTIONS (9)
  - Renal failure [Unknown]
  - Hypersensitivity [Unknown]
  - Rash [Recovering/Resolving]
  - Malaise [Unknown]
  - Loss of consciousness [Unknown]
  - Electrocardiogram abnormal [Unknown]
  - Pyrexia [Unknown]
  - Confusional state [Unknown]
  - Urinary incontinence [Unknown]

NARRATIVE: CASE EVENT DATE: 2014
